FAERS Safety Report 8434788-X (Version None)
Quarter: 2012Q2

REPORT INFORMATION
  Report Type: 
  Country: None (occurrence: None)
  Receive Date: 20120608
  Receipt Date: 20120608
  Transmission Date: 20120825
  Serious: No
  Sender: FDA-Public Use
  Company Number: None

PATIENT

DRUGS (3)
  1. PROZAC [Suspect]
     Indication: ABNORMAL BEHAVIOUR
     Dosage: PROZAC 20 MG, ONCE A DAY
     Dates: start: 20120310, end: 20120310
  2. PROZAC [Suspect]
     Indication: ANXIETY
     Dosage: PROZAC 20 MG, ONCE A DAY
     Dates: start: 20120310, end: 20120310
  3. PROZAC [Suspect]
     Indication: AFFECTIVE DISORDER
     Dosage: PROZAC 20 MG, ONCE A DAY
     Dates: start: 20120310, end: 20120310

REACTIONS (7)
  - ANXIETY [None]
  - DIPLOPIA [None]
  - DYSPNOEA [None]
  - RESTLESSNESS [None]
  - HEART RATE INCREASED [None]
  - TREMOR [None]
  - BLOOD PRESSURE INCREASED [None]
